FAERS Safety Report 7288303-7 (Version None)
Quarter: 2011Q1

REPORT INFORMATION
  Report Type: 
  Country: None (occurrence: None)
  Receive Date: 20110211
  Receipt Date: 20110201
  Transmission Date: 20110831
  Serious: Yes (Hospitalization)
  Sender: FDA-Public Use
  Company Number: US-JNJFOC-20110201406

PATIENT
  Sex: Female
  Weight: 48.8 kg

DRUGS (7)
  1. HUMIRA [Concomitant]
  2. PRILOSEC [Concomitant]
  3. REMICADE [Suspect]
     Indication: INFLAMMATORY BOWEL DISEASE
     Route: 042
  4. IRON [Concomitant]
  5. CALCIUM [Concomitant]
  6. MESALAMINE [Concomitant]
     Route: 048
  7. VITAMIN D [Concomitant]

REACTIONS (1)
  - CELLULITIS [None]
